FAERS Safety Report 22610437 (Version 1)
Quarter: 2023Q2

REPORT INFORMATION
  Report Type: Report from Study
  Country: CA (occurrence: CA)
  Receive Date: 20230616
  Receipt Date: 20230616
  Transmission Date: 20230721
  Serious: Yes (Hospitalization, Other)
  Sender: FDA-Public Use
  Company Number: CA-HLS-202301435

PATIENT
  Sex: Female

DRUGS (1)
  1. CLOZARIL [Suspect]
     Active Substance: CLOZAPINE
     Indication: Product used for unknown indication
     Route: 048
     Dates: start: 20230508, end: 20230522

REACTIONS (4)
  - C-reactive protein increased [Unknown]
  - Pericardial effusion [Unknown]
  - Pericarditis [Unknown]
  - Tachycardia [Unknown]
